FAERS Safety Report 25664656 (Version 2)
Quarter: 2025Q4

REPORT INFORMATION
  Report Type: Spontaneous
  Country: EU (occurrence: EU)
  Receive Date: 20250811
  Receipt Date: 20251027
  Transmission Date: 20260117
  Serious: Yes (Life-Threatening, Hospitalization, Other)
  Sender: AUROBINDO
  Company Number: EU-AEMPS-1739296

PATIENT
  Age: 68 Year
  Sex: Male

DRUGS (6)
  1. VALPROATE SODIUM [Interacting]
     Active Substance: VALPROATE SODIUM
     Indication: Schizophrenia
     Dosage: 2 GRAM, ONCE A DAY
     Route: 048
     Dates: start: 20250515, end: 20250528
  2. QUETIAPINE [Interacting]
     Active Substance: QUETIAPINE
     Indication: Schizophrenia
     Dosage: 100 MILLIGRAM, 3 TIMES A DAY
     Route: 048
     Dates: start: 20250523, end: 20250528
  3. LEVOMEPROMAZINE [Interacting]
     Active Substance: LEVOMEPROMAZINE
     Indication: Schizophrenia
     Dosage: 50 MILLIGRAM, ONCE A DAY
     Route: 048
     Dates: start: 20250515, end: 20250528
  4. RIVOTRIL [Interacting]
     Active Substance: CLONAZEPAM
     Indication: Schizophrenia
     Dosage: 2 MILLIGRAM, ONCE A DAY
     Route: 048
     Dates: start: 20250515, end: 20250528
  5. CLOMETHIAZOLE [Interacting]
     Active Substance: CLOMETHIAZOLE
     Indication: Schizophrenia
     Dosage: 384 MILLIGRAM, ONCE A DAY
     Route: 048
     Dates: start: 20250515, end: 20250528
  6. QUETIAPINE [Concomitant]
     Active Substance: QUETIAPINE
     Indication: Schizophrenia
     Dosage: 550 MILLIGRAM, ONCE A DAY
     Route: 048
     Dates: start: 202303, end: 20250515

REACTIONS (2)
  - Depressed level of consciousness [Recovered/Resolved]
  - Pneumonia aspiration [Recovered/Resolved]

NARRATIVE: CASE EVENT DATE: 20250528
